FAERS Safety Report 6887602-8 (Version None)
Quarter: 2010Q3

REPORT INFORMATION
  Report Type: 
  Country: None (occurrence: None)
  Receive Date: 20100730
  Receipt Date: 20100713
  Transmission Date: 20110219
  Serious: Yes (Hospitalization)
  Sender: FDA-Public Use
  Company Number: BR-MEDIMMUNE-MEDI-0011442

PATIENT
  Sex: Female
  Weight: 5.65 kg

DRUGS (4)
  1. SYNAGIS [Suspect]
     Indication: BRONCHOPULMONARY DYSPLASIA
     Route: 030
     Dates: start: 20100616, end: 20100616
  2. SYNAGIS [Suspect]
  3. FERROUS SULFATE [Concomitant]
     Route: 048
     Dates: start: 20091014
  4. MULTI-VITAMINS [Concomitant]
     Dates: start: 20091014

REACTIONS (4)
  - DIARRHOEA [None]
  - VIRAL INFECTION [None]
  - VOMITING [None]
  - WEIGHT DECREASED [None]
